FAERS Safety Report 8071809-0 (Version None)
Quarter: 2012Q1

REPORT INFORMATION
  Report Type: 
  Country: None (occurrence: None)
  Receive Date: 20120126
  Receipt Date: 20120117
  Transmission Date: 20120608
  Serious: No
  Sender: FDA-Public Use
  Company Number: US-BIOGENIDEC-2011BI026951

PATIENT
  Sex: Female

DRUGS (1)
  1. TYSABRI [Suspect]
     Indication: MULTIPLE SCLEROSIS
     Route: 042
     Dates: start: 20110101

REACTIONS (31)
  - ANXIETY [None]
  - STRESS [None]
  - ACNE [None]
  - NAUSEA [None]
  - PERSONALITY DISORDER [None]
  - DIARRHOEA [None]
  - PERSONALITY CHANGE [None]
  - CRYING [None]
  - BODY TEMPERATURE INCREASED [None]
  - TREMOR [None]
  - RASH [None]
  - DRUG INEFFECTIVE [None]
  - COGNITIVE DISORDER [None]
  - AFFECT LABILITY [None]
  - CONTUSION [None]
  - INFLUENZA [None]
  - AGITATION [None]
  - DISTURBANCE IN ATTENTION [None]
  - MEMORY IMPAIRMENT [None]
  - BLINDNESS UNILATERAL [None]
  - FALL [None]
  - INSOMNIA [None]
  - CENTRAL NERVOUS SYSTEM LESION [None]
  - VISUAL IMPAIRMENT [None]
  - HYPERSOMNIA [None]
  - GAIT DISTURBANCE [None]
  - SUTURE INSERTION [None]
  - FEELING ABNORMAL [None]
  - ANGER [None]
  - DYSPNOEA [None]
  - ASTHENIA [None]
